FAERS Safety Report 9294202 (Version 1)
Quarter: 2013Q1

REPORT INFORMATION
  Report Type: Spontaneous
  Country: US (occurrence: US)
  Receive Date: 20121214
  Receipt Date: 20121214
  Transmission Date: 20140127
  Serious: Yes (Other)
  Sender: FDA-Public Use
  Company Number: 1206USA02119

PATIENT
  Age: 69 Year
  Sex: Male
  Weight: 121.5 kg

DRUGS (21)
  1. JANUVIA (SITAGLIPTIN PHOSPHATE (FILM-COATED TABLET, 50 MG [Suspect]
     Indication: TYPE 2 DIABETES MELLITUS
     Route: 048
  2. PRINIVIL (LISINOPRIL) TABLET [Concomitant]
  3. LIPITOR (ATORVASTATIN CALCIUM), 5 MG [Concomitant]
  4. METFORMIN (METFORMIN), 500 MG [Concomitant]
  5. POTASSIUM CHLORIDE (POTASSIUM CHLORIDE), 10 MEQ [Concomitant]
  6. TRILIPIX (CHOLINE FENOFIBRATE) [Concomitant]
  7. CHOLECALCIFEROL (CHOLECALCIFEROL), 1000IU [Concomitant]
  8. ECOTRIN (ASPIRIN), 325 MG [Concomitant]
  9. CYANOCOBALAMIN (CYANOCOBALAMIN), 1000 IU [Concomitant]
  10. FLUTICASONE (FLUTICASONE) [Concomitant]
  11. LASIX (FUROSEMIDE) (FUROSEMIDE), 20 MG [Concomitant]
  12. GLIPIZIDE (GLIPIZIDE), 2 MG [Concomitant]
  13. LANTUS (INSULIN GLARGINE) [Concomitant]
  14. HUMALOG (INSULIN LISPRO) [Concomitant]
  15. HYDROCHLOROTHIAZIDE (+) LISINOPRIL (HYDROCHLOROTHIAZIDE, LISINOPRIL) [Concomitant]
  16. VITAMINS (UNSPECIFIED) (VITAMINS (UNSPECIFIED)) [Concomitant]
  17. LOVAZA (OMEGA-3 ACID ETHYL ESTERS), 1000 MG [Concomitant]
  18. TESTOSTERONE (TESTOSTERONE) [Concomitant]
  19. VICODIN (ACETAMINOPHEN, HYDROCODONE BITARTRATE), 500 MG/5 MG [Concomitant]
  20. LORATADINE (LORATADINE), 10 MG [Concomitant]
  21. VALTREX (VALACYCLOVIR HYDROCHLORIDE), 1000 MG [Concomitant]

REACTIONS (1)
  - Pancreatitis acute [None]
